FAERS Safety Report 8051099-5 (Version None)
Quarter: 2012Q1

REPORT INFORMATION
  Report Type: 
  Country: None (occurrence: None)
  Receive Date: 20120117
  Receipt Date: 20120112
  Transmission Date: 20120608
  Serious: Yes (Life-Threatening)
  Sender: FDA-Public Use
  Company Number: PHHY2012TR003007

PATIENT
  Sex: Female
  Weight: 54 kg

DRUGS (5)
  1. DAXAS [Concomitant]
     Route: 048
  2. CALCIUM [Concomitant]
  3. ONBREZ [Suspect]
     Indication: CHRONIC OBSTRUCTIVE PULMONARY DISEASE
     Dosage: 1 DF, QD
     Dates: start: 20111228, end: 20120101
  4. VITAMIN D [Concomitant]
  5. BISPHOSPHONATES [Concomitant]

REACTIONS (2)
  - TACHYCARDIA [None]
  - HAEMODYNAMIC INSTABILITY [None]
